FAERS Safety Report 17105753 (Version 1)
Quarter: 2019Q4

REPORT INFORMATION
  Report Type: Spontaneous
  Country: TR (occurrence: TR)
  Receive Date: 20191203
  Receipt Date: 20191203
  Transmission Date: 20200122
  Serious: Yes (Life-Threatening, Hospitalization, Other)
  Sender: FDA-Public Use
  Company Number: TR-ASTRAZENECA-2019SF72809

PATIENT
  Age: 14 Year
  Sex: Female

DRUGS (7)
  1. QUETIAPINE. [Interacting]
     Active Substance: QUETIAPINE
     Indication: AFFECTIVE DISORDER
     Route: 048
  2. QUETIAPINE. [Interacting]
     Active Substance: QUETIAPINE
     Indication: AFFECTIVE DISORDER
     Dosage: 10X 400 MG OVERDOSSE USED AS SUICIDE ATTEMPT
     Route: 048
  3. FLUOXETINE [Interacting]
     Active Substance: FLUOXETINE HYDROCHLORIDE
     Indication: DEPRESSION
     Route: 065
  4. QUETIAPINE. [Interacting]
     Active Substance: QUETIAPINE
     Indication: AFFECTIVE DISORDER
     Dosage: INCREASED GRADULLAY TO 400 MG/DAY
     Route: 048
  5. QUETIAPINE. [Interacting]
     Active Substance: QUETIAPINE
     Indication: MAJOR DEPRESSION
     Dosage: 10X 400 MG OVERDOSSE USED AS SUICIDE ATTEMPT
     Route: 048
  6. QUETIAPINE. [Suspect]
     Active Substance: QUETIAPINE
     Indication: MAJOR DEPRESSION
     Dosage: INCREASED GRADULLAY TO 400 MG/DAY
     Route: 048
  7. QUETIAPINE. [Interacting]
     Active Substance: QUETIAPINE
     Indication: MAJOR DEPRESSION
     Route: 048

REACTIONS (5)
  - Suicide attempt [Recovered/Resolved]
  - Intentional overdose [Recovered/Resolved]
  - Hypomania [Recovered/Resolved]
  - Drug interaction [Recovered/Resolved]
  - Off label use [Unknown]
